FAERS Safety Report 25094236 (Version 1)
Quarter: 2025Q1

REPORT INFORMATION
  Report Type: Report from Study
  Country: AR (occurrence: AR)
  Receive Date: 20250319
  Receipt Date: 20250319
  Transmission Date: 20250408
  Serious: Yes (Hospitalization)
  Sender: ASTELLAS
  Company Number: AR-PFIZER INC-PV202500028810

PATIENT
  Age: 74 Year
  Sex: Male

DRUGS (1)
  1. ENFORTUMAB VEDOTIN-EJFV [Suspect]
     Active Substance: ENFORTUMAB VEDOTIN-EJFV
     Indication: Bladder cancer
     Dosage: 90 MG, EVERY 7 DAYS?POWDER FOR SOLUTION FOR INFUSION
     Route: 042
     Dates: start: 20250117

REACTIONS (1)
  - White blood cell count decreased [Not Recovered/Not Resolved]

NARRATIVE: CASE EVENT DATE: 20250305
